FAERS Safety Report 9639696 (Version 2)
Quarter: 2013Q4

REPORT INFORMATION
  Report Type: Other
  Country: US (occurrence: US)
  Receive Date: 20131023
  Receipt Date: 20131023
  Transmission Date: 20140711
  Serious: Yes (Life-Threatening, Other)
  Sender: FDA-Public Use
  Company Number: US-SHIRE-ALL1-2013-04676

PATIENT
  Age: 71 Year
  Sex: Male
  Weight: 79 kg

DRUGS (4)
  1. VPRIV [Suspect]
     Indication: GAUCHER^S DISEASE
     Dosage: 5200 IU, 1X/2WKS
     Route: 041
     Dates: start: 2010
  2. OMEPRAZOLE [Concomitant]
     Indication: GASTROOESOPHAGEAL REFLUX DISEASE
     Dosage: 20 MG, UNKNOWN
     Route: 048
     Dates: start: 2008
  3. ZOLENDRONIC ACID [Concomitant]
     Indication: OSTEOPOROSIS
     Dosage: 4 MG, UNKNOWN
     Route: 042
     Dates: start: 2009
  4. EZETIMIBE [Concomitant]
     Indication: BLOOD CHOLESTEROL INCREASED
     Dosage: 10 MG, UNKNOWN
     Route: 048
     Dates: start: 2008

REACTIONS (2)
  - Hepatocellular carcinoma [Not Recovered/Not Resolved]
  - Osteonecrosis [Unknown]
